FAERS Safety Report 10221538 (Version 1)
Quarter: 2014Q2

REPORT INFORMATION
  Report Type: Spontaneous
  Country: FR (occurrence: FR)
  Receive Date: 20140606
  Receipt Date: 20140606
  Transmission Date: 20141212
  Serious: Yes (Other)
  Sender: FDA-Public Use
  Company Number: FR-BAXTER-2014BAX028042

PATIENT
  Age: 35 Year
  Sex: Male

DRUGS (6)
  1. ENDOXAN 500 MG, POUDRE POUR SOLUTION INJECTABLE [Suspect]
     Indication: DERMATOMYOSITIS
     Route: 042
  2. PREDNISOLONE [Suspect]
     Indication: DERMATOMYOSITIS
     Route: 065
  3. GAMMAGLOBULIN [Suspect]
     Indication: DERMATOMYOSITIS
     Route: 042
  4. MYCOPHENOLATE MOFETIL [Suspect]
     Indication: DERMATOMYOSITIS
     Route: 042
  5. AZATHIOPRINE [Suspect]
     Indication: DERMATOMYOSITIS
     Route: 042
  6. RITUXIMAB [Suspect]
     Indication: DERMATOMYOSITIS
     Route: 042

REACTIONS (1)
  - Drug ineffective [Not Recovered/Not Resolved]
